FAERS Safety Report 23543602 (Version 1)
Quarter: 2024Q1

REPORT INFORMATION
  Report Type: Spontaneous
  Country: US (occurrence: US)
  Receive Date: 20240220
  Receipt Date: 20240220
  Transmission Date: 20240410
  Serious: No
  Sender: FDA-Public Use
  Company Number: US-BAUSCH-BL-2024-002374

PATIENT
  Age: 60 Year
  Sex: Female

DRUGS (1)
  1. TRULANCE [Suspect]
     Active Substance: PLECANATIDE
     Indication: Colitis ulcerative
     Route: 065
     Dates: start: 20240113, end: 20240208

REACTIONS (1)
  - Constipation [Not Recovered/Not Resolved]
